FAERS Safety Report 4341194-6 (Version None)
Quarter: 2004Q1

REPORT INFORMATION
  Report Type: 
  Country: None (occurrence: None)
  Receive Date: 20040329
  Receipt Date: 20031205
  Transmission Date: 20041129
  Serious: No
  Sender: FDA-Public Use
  Company Number: 03P-163-0244151-00

PATIENT
  Age: 76 Year
  Sex: Female
  Weight: 68.0396 kg

DRUGS (15)
  1. HUMIRA [Suspect]
     Indication: RHEUMATOID ARTHRITIS
     Dosage: 40 MG, 1 IN 2 WK, SUBCUTANEOUS
     Route: 058
     Dates: start: 20030701
  2. METOPROLOL SUCCINATE [Concomitant]
  3. DIGOXIN [Concomitant]
  4. DIOVAN [Concomitant]
  5. LEVOTHYROXINE SODIUM [Concomitant]
  6. FOLIC ACID [Concomitant]
  7. METHOTREXATE SODIUM [Concomitant]
  8. WARFARIN SODIUM [Concomitant]
  9. ROFECOXIB [Concomitant]
  10. AMLODIPINE BESYLATE [Concomitant]
  11. PHENYTOIN SODIUM [Concomitant]
  12. ATORVASTATIN [Concomitant]
  13. RABEPRAZOLE SODIUM [Concomitant]
  14. RISEDRONATE SODIUM [Concomitant]
  15. AMITRIPTYLINE HCL [Concomitant]

REACTIONS (2)
  - BLOOD CHOLESTEROL INCREASED [None]
  - LIPIDS INCREASED [None]
